FAERS Safety Report 6153689-3 (Version None)
Quarter: 2009Q2

REPORT INFORMATION
  Report Type: 
  Country: None (occurrence: None)
  Receive Date: 20090409
  Receipt Date: 20090326
  Transmission Date: 20091009
  Serious: Yes (Hospitalization)
  Sender: FDA-Public Use
  Company Number: JPI-P-006631

PATIENT
  Age: 59 Year
  Sex: Female
  Weight: 76 kg

DRUGS (4)
  1. XYREM [Suspect]
     Indication: CATAPLEXY
     Dosage: 4.5 GM (2.25 GM, 2 IN 1 D), ORAL
     Route: 048
     Dates: start: 20071120
  2. LIDOCAINE [Concomitant]
  3. FLUOXETINE HYDROCHLORIDE [Concomitant]
  4. ACETYLSALICYLIC ACID [Concomitant]

REACTIONS (5)
  - AFFECT LABILITY [None]
  - ANHEDONIA [None]
  - CONFUSIONAL STATE [None]
  - DEPRESSION [None]
  - FALL [None]
